FAERS Safety Report 10570028 (Version 1)
Quarter: 2014Q4

REPORT INFORMATION
  Report Type: Spontaneous
  Country: US (occurrence: None)
  Receive Date: 20141105
  Receipt Date: 20141105
  Transmission Date: 20150529
  Serious: No
  Sender: FDA-Public Use
  Company Number: BB14-319-AE

PATIENT
  Age: 70 Year
  Sex: Female
  Weight: 54.43 kg

DRUGS (3)
  1. FLUOCINOLONE ACETONIDE. [Suspect]
     Active Substance: FLUOCINOLONE ACETONIDE
     Indication: EAR PAIN
     Dosage: OTIC
     Route: 048
     Dates: start: 20140806, end: 20140808
  2. FLUOCINOLONE ACETONIDE. [Suspect]
     Active Substance: FLUOCINOLONE ACETONIDE
     Indication: EAR PRURITUS
     Dosage: OTIC
     Route: 048
     Dates: start: 20140806, end: 20140808
  3. PROAIR HFA [Concomitant]
     Active Substance: ALBUTEROL SULFATE

REACTIONS (5)
  - Ear discomfort [None]
  - Product container seal issue [None]
  - Salivary hypersecretion [None]
  - Dysgeusia [None]
  - Oral discomfort [None]

NARRATIVE: CASE EVENT DATE: 20140807
